FAERS Safety Report 11319615 (Version 1)
Quarter: 2015Q3

REPORT INFORMATION
  Report Type: Spontaneous
  Country: FR (occurrence: FR)
  Receive Date: 20150729
  Receipt Date: 20150729
  Transmission Date: 20151125
  Serious: Yes (Hospitalization, Other)
  Sender: FDA-Public Use
  Company Number: FR-ASTRAZENECA-2015SE72364

PATIENT
  Age: 25172 Day
  Sex: Female

DRUGS (11)
  1. MOPRAL [Suspect]
     Active Substance: OMEPRAZOLE SODIUM
     Dosage: 40 MG EVERY DAY, ZOLTUM
     Route: 065
     Dates: start: 1997, end: 20150720
  2. DEBRIDAT [Concomitant]
     Active Substance: TRIMEBUTINE MALEATE
  3. MOPRAL [Suspect]
     Active Substance: OMEPRAZOLE SODIUM
     Route: 065
     Dates: start: 20150720, end: 20150721
  4. FELDENE [Concomitant]
     Active Substance: PIROXICAM
  5. MOPRAL [Suspect]
     Active Substance: OMEPRAZOLE SODIUM
     Dosage: 40 MG EVERY DAY, ZOLTUM
     Route: 065
     Dates: start: 20150721
  6. DAFALGAN CODEINE [Concomitant]
     Active Substance: ACETAMINOPHEN\CODEINE PHOSPHATE
  7. HYPERIUM [Concomitant]
     Active Substance: RILMENIDINE PHOSPHATE
     Indication: HYPERTENSION
  8. ATARAX [Concomitant]
     Active Substance: HYDROXYZINE\HYDROXYZINE HYDROCHLORIDE
     Indication: HYPERSENSITIVITY
  9. MOPRAL [Suspect]
     Active Substance: OMEPRAZOLE SODIUM
     Route: 065
     Dates: start: 1994, end: 1997
  10. ELISOR [Concomitant]
     Active Substance: PRAVASTATIN SODIUM
     Indication: HYPERCHOLESTEROLAEMIA
  11. ACUILIX [Concomitant]
     Active Substance: HYDROCHLOROTHIAZIDE\QUINAPRIL HYDROCHLORIDE

REACTIONS (7)
  - Blood potassium decreased [Recovered/Resolved]
  - Cardiac disorder [Recovered/Resolved]
  - Drug ineffective [Recovered/Resolved]
  - Somnolence [Recovered/Resolved]
  - Faeces discoloured [Recovered/Resolved]
  - Red blood cell count decreased [Recovered/Resolved]
  - Blood sodium decreased [Recovered/Resolved]

NARRATIVE: CASE EVENT DATE: 20150720
